FAERS Safety Report 24585442 (Version 2)
Quarter: 2024Q4

REPORT INFORMATION
  Report Type: Spontaneous
  Country: GB (occurrence: GB)
  Receive Date: 20241106
  Receipt Date: 20241115
  Transmission Date: 20250114
  Serious: Yes (Other)
  Sender: SANDOZ
  Company Number: None

PATIENT
  Age: 52 Year
  Sex: Female
  Weight: 57 kg

DRUGS (5)
  1. CLARITHROMYCIN [Suspect]
     Active Substance: CLARITHROMYCIN
     Indication: Product used for unknown indication
     Dosage: ONE TO BE TAKEN TWICE A DAY
     Route: 065
     Dates: start: 20241021, end: 20241024
  2. AMOXICILLIN [Concomitant]
     Active Substance: AMOXICILLIN
     Indication: Product used for unknown indication
     Dosage: FOR FIVE DAYS
     Route: 065
     Dates: start: 20241015
  3. CIPROFLOXACIN\DEXAMETHASONE [Concomitant]
     Active Substance: CIPROFLOXACIN\DEXAMETHASONE
     Dosage: APPLY 4 DROPS TWICE DAILY TO THE EFFECTED EAR FOR 7 DAY5ML
     Route: 065
     Dates: start: 20241021
  4. CIPROFLOXACIN\DEXAMETHASONE [Concomitant]
     Active Substance: CIPROFLOXACIN\DEXAMETHASONE
     Indication: Product used for unknown indication
     Dosage: APPLY 4 DROPS TWICE DAILY TO THE EFFECTED EAR FOR 7 DAYS5ML  (CIPROFLOXACIN 0.3% / DEXAMETHASONE 0.1
     Route: 065
     Dates: start: 20241007
  5. MOMETASONE [Concomitant]
     Active Substance: MOMETASONE
     Indication: Acute sinusitis
     Dosage: TWO SPRAYS TO BE USED IN EACH NOSTRIL TWICE A DAY, THEN REDUCE WHEN SYMPTOMS UNDER CONTROL
     Route: 045
     Dates: start: 20241015

REACTIONS (1)
  - Suicidal ideation [Recovered/Resolved]

NARRATIVE: CASE EVENT DATE: 20241021
